FAERS Safety Report 13314989 (Version 1)
Quarter: 2017Q1

REPORT INFORMATION
  Report Type: Report from Study
  Country: CA (occurrence: CA)
  Receive Date: 20170309
  Receipt Date: 20170309
  Transmission Date: 20170428
  Serious: Yes (Hospitalization)
  Sender: FDA-Public Use
  Company Number: CA-BEH-2017078683

PATIENT
  Sex: Female

DRUGS (1)
  1. HIZENTRA [Suspect]
     Active Substance: HUMAN IMMUNOGLOBULIN G
     Indication: PRIMARY IMMUNODEFICIENCY SYNDROME
     Dosage: 60 ML, QW
     Route: 058

REACTIONS (3)
  - Muscular weakness [Not Recovered/Not Resolved]
  - Nerve injury [Not Recovered/Not Resolved]
  - Eosinophilic granulomatosis with polyangiitis [Not Recovered/Not Resolved]
